FAERS Safety Report 10076233 (Version 3)
Quarter: 2014Q2

REPORT INFORMATION
  Report Type: Report from Study
  Country: US (occurrence: US)
  Receive Date: 20140414
  Receipt Date: 20140429
  Transmission Date: 20141212
  Serious: Yes (Hospitalization)
  Sender: FDA-Public Use
  Company Number: US-ACTELION-A-NJ2013-93056

PATIENT
  Age: 63 Year
  Sex: Male

DRUGS (1)
  1. TRACLEER [Suspect]
     Indication: PULMONARY ARTERIAL HYPERTENSION
     Dosage: 125 MG, UNK
     Route: 048
     Dates: start: 200308

REACTIONS (8)
  - Pulmonary embolism [Recovering/Resolving]
  - Urinary tract infection [Recovering/Resolving]
  - Dyspnoea [Recovering/Resolving]
  - Syncope [Unknown]
  - Suffocation feeling [Unknown]
  - Oedema [Unknown]
  - Peripheral swelling [Unknown]
  - Dyspnoea exertional [Unknown]
